FAERS Safety Report 8805530 (Version 2)
Quarter: 2015Q2

REPORT INFORMATION
  Report Type: Report from Study
  Country: US (occurrence: US)
  Receive Date: 20120924
  Receipt Date: 20150413
  Transmission Date: 20150821
  Serious: Yes (Death)
  Sender: FDA-Public Use
  Company Number: US-ROCHE-1128459

PATIENT
  Sex: Female

DRUGS (41)
  1. DOXIL [Suspect]
     Active Substance: DOXORUBICIN HYDROCHLORIDE
     Indication: BREAST CANCER FEMALE
     Dosage: 07/MAR/2006, 04/APR/2006, 25/APR/2006
     Route: 042
     Dates: start: 200511
  2. DOXIL [Suspect]
     Active Substance: DOXORUBICIN HYDROCHLORIDE
     Dosage: 24/JAN/2006, 14/FEB/2006
     Route: 042
  3. ARANESP [Concomitant]
     Active Substance: DARBEPOETIN ALFA
     Route: 058
  4. MORPHINE SULFATE IMMEDIATE RELEASE [Concomitant]
     Dosage: 2 TABS AM,2 TABS PMO
     Route: 048
  5. SENOKOT [Concomitant]
     Active Substance: SENNOSIDES
     Dosage: 2 TABLETS
     Route: 048
  6. ACYCLOVIR. [Concomitant]
     Active Substance: ACYCLOVIR
     Route: 048
  7. ALPROSTADIL. [Concomitant]
     Active Substance: ALPROSTADIL
  8. AVASTIN [Suspect]
     Active Substance: BEVACIZUMAB
     Dosage: 29/NOV/2005, 13/DEC/2005, 27/DEC/2005, 24/JAN/2006, 14/FEB/2006, 07/MAR/2006, 28/MAR/2006, 25/APR/2
     Route: 042
  9. DOXIL [Suspect]
     Active Substance: DOXORUBICIN HYDROCHLORIDE
     Dosage: 27/DEC/2005
     Route: 042
  10. ARANESP [Concomitant]
     Active Substance: DARBEPOETIN ALFA
     Route: 058
  11. COUMADIN [Concomitant]
     Active Substance: WARFARIN SODIUM
  12. METHOTREXATE [Concomitant]
     Active Substance: METHOTREXATE
     Route: 065
  13. AVASTIN [Suspect]
     Active Substance: BEVACIZUMAB
     Indication: BREAST CANCER FEMALE
     Route: 042
     Dates: start: 20051117
  14. DECADRON [Concomitant]
     Active Substance: DEXAMETHASONE
     Route: 042
  15. 5-FLUOROURACIL [Concomitant]
     Active Substance: FLUOROURACIL
     Route: 042
  16. DOXIL [Suspect]
     Active Substance: DOXORUBICIN HYDROCHLORIDE
     Route: 042
  17. ARANESP [Concomitant]
     Active Substance: DARBEPOETIN ALFA
     Route: 058
  18. CYTOXAN [Concomitant]
     Active Substance: CYCLOPHOSPHAMIDE
     Route: 065
  19. DOXIL [Suspect]
     Active Substance: DOXORUBICIN HYDROCHLORIDE
     Dosage: 29/NOV/2005
     Route: 042
  20. DECADRON [Concomitant]
     Active Substance: DEXAMETHASONE
     Route: 042
  21. PAPAVERINE [Concomitant]
     Active Substance: PAPAVERINE
  22. KYTRIL [Concomitant]
     Active Substance: GRANISETRON HYDROCHLORIDE
     Dosage: 24/JAN/2006, 14/FEB/2006
     Route: 065
  23. BACTRIM [Concomitant]
     Active Substance: SULFAMETHOXAZOLE\TRIMETHOPRIM
     Route: 065
  24. MIRALAX [Concomitant]
     Active Substance: POLYETHYLENE GLYCOL 3350
  25. CEPHALEXIN. [Concomitant]
     Active Substance: CEPHALEXIN
  26. IBUPROFEN. [Concomitant]
     Active Substance: IBUPROFEN
  27. DOXIL [Suspect]
     Active Substance: DOXORUBICIN HYDROCHLORIDE
     Route: 042
  28. XELODA [Suspect]
     Active Substance: CAPECITABINE
     Indication: PRODUCT USED FOR UNKNOWN INDICATION
     Route: 065
  29. ZOMETA [Concomitant]
     Active Substance: ZOLEDRONIC ACID
     Route: 042
  30. ZOFRAN [Concomitant]
     Active Substance: ONDANSETRON HYDROCHLORIDE
  31. LORAZEPAM. [Concomitant]
     Active Substance: LORAZEPAM
     Route: 065
  32. PHENERGAN [Concomitant]
     Active Substance: PROMETHAZINE HYDROCHLORIDE
  33. VITAMIN B6 [Concomitant]
     Active Substance: PYRIDOXINE HYDROCHLORIDE
  34. ZITHROMAX [Concomitant]
     Active Substance: AZITHROMYCIN DIHYDRATE
  35. NEULASTA [Suspect]
     Active Substance: PEGFILGRASTIM
     Indication: PRODUCT USED FOR UNKNOWN INDICATION
     Dosage: 01/DEC/2005, 28/DEC/2005, 26/JAN/2006, 06/APR/2006, 26/APR/2006, 08/AUG/2006,
     Route: 065
  36. MS CONTIN [Concomitant]
     Active Substance: MORPHINE SULFATE
     Dosage: 30MG 2 TABS AM,2 TABS PM
     Route: 048
  37. PEPCID [Concomitant]
     Active Substance: FAMOTIDINE
     Route: 042
  38. LYRICA [Concomitant]
     Active Substance: PREGABALIN
  39. LACTULOSE. [Concomitant]
     Active Substance: LACTULOSE
     Route: 065
  40. LOVENOX [Concomitant]
     Active Substance: ENOXAPARIN SODIUM
     Route: 065
  41. ALOXI [Concomitant]
     Active Substance: PALONOSETRON HYDROCHLORIDE
     Route: 042

REACTIONS (33)
  - Off label use [Unknown]
  - Constipation [Unknown]
  - Rhinitis [Unknown]
  - Death [Fatal]
  - Weight decreased [Unknown]
  - Bone pain [Unknown]
  - Mucosal inflammation [Unknown]
  - Proteinuria [Unknown]
  - Pleural effusion [Recovered/Resolved]
  - Atelectasis [Unknown]
  - Horner^s syndrome [Unknown]
  - Weight increased [Unknown]
  - Palmar-plantar erythrodysaesthesia syndrome [Recovered/Resolved]
  - Dyspepsia [Unknown]
  - Musculoskeletal pain [Unknown]
  - Alveolar lung disease [Unknown]
  - Pupils unequal [Unknown]
  - Asthenia [Unknown]
  - Disease progression [Unknown]
  - Renal neoplasm [Unknown]
  - Pulmonary fibrosis [Unknown]
  - Breast cancer recurrent [Unknown]
  - Insomnia [Unknown]
  - Vomiting [Unknown]
  - Diarrhoea [Unknown]
  - Decreased appetite [Unknown]
  - Liver disorder [Unknown]
  - Scar [Unknown]
  - Herpes zoster [Unknown]
  - Fatigue [Unknown]
  - Sinusitis [Unknown]
  - Nausea [Unknown]
  - Neutrophil count decreased [Unknown]
